FAERS Safety Report 4562394-6 (Version None)
Quarter: 2005Q1

REPORT INFORMATION
  Report Type: 
  Country: None (occurrence: None)
  Receive Date: 20050127
  Receipt Date: 20040428
  Transmission Date: 20050727
  Serious: No
  Sender: FDA-Public Use
  Company Number: US-BRISTOL-MYERS SQUIBB COMPANY-12573556

PATIENT
  Age: 5 Decade
  Sex: Female

DRUGS (1)
  1. KENALOG [Suspect]
     Indication: BACK PAIN
     Route: 051
     Dates: start: 20040401, end: 20040401

REACTIONS (1)
  - SWELLING FACE [None]
